FAERS Safety Report 8845249 (Version 1)
Quarter: 2012Q4

REPORT INFORMATION
  Report Type: Report from Study
  Country: DE (occurrence: JP)
  Receive Date: 20121017
  Receipt Date: 20121017
  Transmission Date: 20130627
  Serious: Yes (Other)
  Sender: FDA-Public Use
  Company Number: JP-BRISTOL-MYERS SQUIBB COMPANY-17038894

PATIENT
  Age: 57 Year
  Sex: Male
  Weight: 79 kg

DRUGS (9)
  1. ERBITUX SOLN FOR INF 5MG/ML [Suspect]
     Indication: COLON CANCER
     Dosage: 04Nov08-04Nov08,Including skipped week;300mg;11Nov08-21Apr09
     Route: 041
     Dates: start: 20081104, end: 20090421
  2. IRINOTECAN [Concomitant]
     Indication: COLON CANCER
     Route: 041
     Dates: start: 20081104, end: 20090414
  3. DIPHENHYDRAMINE [Concomitant]
     Indication: PREMEDICATION
     Route: 048
     Dates: start: 20081104
  4. DEXAMETHASONE SODIUM PHOSPHATE [Concomitant]
     Indication: PREMEDICATION
     Route: 042
     Dates: start: 20081111
  5. HALCION [Concomitant]
     Indication: INSOMNIA
     Dosage: tab
     Route: 048
     Dates: start: 20070222
  6. CODEINE PHOSPHATE [Concomitant]
     Indication: COUGH
     Dosage: granules
     Route: 048
     Dates: start: 20081107
  7. MAGMITT [Concomitant]
     Indication: CONSTIPATION PROPHYLAXIS
     Route: 048
     Dates: start: 20070222
  8. HOKUNALIN [Concomitant]
     Indication: DYSPNOEA
     Dosage: transdermal patch
     Route: 062
     Dates: start: 20081028
  9. PONTAL [Concomitant]
     Indication: HEADACHE
     Route: 048
     Dates: start: 20081106

REACTIONS (3)
  - Gastrointestinal haemorrhage [Recovered/Resolved]
  - Infusion related reaction [Recovered/Resolved]
  - Acne [Recovered/Resolved]
